FAERS Safety Report 5440916-0 (Version None)
Quarter: 2007Q3

REPORT INFORMATION
  Report Type: 
  Country: None (occurrence: None)
  Receive Date: 20070831
  Receipt Date: 20070822
  Transmission Date: 20080115
  Serious: Yes (Other)
  Sender: FDA-Public Use
  Company Number: BR-PFIZER INC-2006021956

PATIENT
  Sex: Male
  Weight: 90 kg

DRUGS (5)
  1. SU-011,248 [Suspect]
     Indication: METASTATIC RENAL CELL CARCINOMA
     Route: 048
     Dates: start: 20060114, end: 20060210
  2. SU-011,248 [Suspect]
     Route: 048
  3. SERTRALINE [Concomitant]
     Dosage: TEXT:UNKNOWN-FREQ:UNKNOWN
     Route: 048
  4. TEGASEROD [Concomitant]
     Dosage: TEXT:UNKNOWN-FREQ:UNKNWOWN
     Route: 048
  5. ESOMEPRAZOLE MAGNESIUM [Concomitant]
     Dosage: TEXT:UNKNOWN-FREQ:UNKNOWN
     Route: 048

REACTIONS (2)
  - VITREOUS DETACHMENT [None]
  - VITREOUS HAEMORRHAGE [None]
